FAERS Safety Report 17367238 (Version 1)
Quarter: 2020Q1

REPORT INFORMATION
  Report Type: Report from Study
  Country: EG (occurrence: EG)
  Receive Date: 20200204
  Receipt Date: 20200204
  Transmission Date: 20200409
  Serious: Yes (Hospitalization)
  Sender: FDA-Public Use
  Company Number: NVSC2020EG025255

PATIENT
  Age: 67 Year
  Sex: Female

DRUGS (2)
  1. ENTRESTO [Suspect]
     Active Substance: SACUBITRIL\VALSARTAN
     Indication: CARDIAC FAILURE
     Dosage: 100 MG, BID
     Route: 048
     Dates: start: 2019
  2. ENTRESTO [Suspect]
     Active Substance: SACUBITRIL\VALSARTAN
     Dosage: 50 MG, UNKNOWN
     Route: 048
     Dates: end: 202001

REACTIONS (5)
  - Peripheral swelling [Recovering/Resolving]
  - Oedema [Recovering/Resolving]
  - Hypotension [Recovered/Resolved]
  - Anuria [Recovering/Resolving]
  - Dependence on respirator [Unknown]

NARRATIVE: CASE EVENT DATE: 202001
